FAERS Safety Report 4702814-7 (Version None)
Quarter: 2005Q2

REPORT INFORMATION
  Report Type: 
  Country: None (occurrence: None)
  Receive Date: 20050629
  Receipt Date: 20050624
  Transmission Date: 20051028
  Serious: Yes (Life-Threatening, Hospitalization)
  Sender: FDA-Public Use
  Company Number: DE-SANOFI-SYNTHELABO-F04200500095

PATIENT
  Sex: Male
  Weight: 62 kg

DRUGS (5)
  1. ELOXATIN [Suspect]
     Indication: RECTAL CANCER
     Route: 041
     Dates: start: 20050303, end: 20050303
  2. CAPECITABIN [Suspect]
     Indication: RECTAL CANCER
     Dosage: 1460.707 MG/M2
     Route: 048
     Dates: start: 20050303, end: 20050317
  3. DEXAMETHASONE [Concomitant]
     Indication: DRUG USE FOR UNKNOWN INDICATION
     Dosage: UNK
     Route: 065
     Dates: start: 20050303
  4. VOMEX [Concomitant]
     Indication: DRUG USE FOR UNKNOWN INDICATION
     Dosage: UNK
     Route: 054
     Dates: start: 20050303
  5. ZOFRAN [Concomitant]
     Indication: DRUG USE FOR UNKNOWN INDICATION
     Dosage: UNK
     Route: 065
     Dates: start: 20050303

REACTIONS (9)
  - BRONCHOPNEUMONIA [None]
  - DEHYDRATION [None]
  - DISTURBANCE IN ATTENTION [None]
  - OLIGURIA [None]
  - PANCYTOPENIA [None]
  - PNEUMOTHORAX [None]
  - RENAL FAILURE [None]
  - RESPIRATORY FAILURE [None]
  - SEPTIC SHOCK [None]
